FAERS Safety Report 14907426 (Version 1)
Quarter: 2018Q2

REPORT INFORMATION
  Report Type: Spontaneous
  Country: US (occurrence: US)
  Receive Date: 20180428
  Receipt Date: 20180428
  Transmission Date: 20180711
  Serious: Yes (Hospitalization)
  Sender: FDA-Public Use
  Company Number: None

PATIENT
  Age: 47 Year
  Sex: Male
  Weight: 80.9 kg

DRUGS (3)
  1. 5-FLUOROURACIL (5-FU) [Suspect]
     Active Substance: FLUOROURACIL
     Dates: end: 20180409
  2. LEUCOVORIN CALCIUM. [Suspect]
     Active Substance: LEUCOVORIN CALCIUM
     Dates: end: 20180409
  3. ELOXATIN [Suspect]
     Active Substance: OXALIPLATIN
     Dates: end: 20180409

REACTIONS (5)
  - Flank pain [None]
  - Pulmonary embolism [None]
  - Pulmonary haemorrhage [None]
  - Pneumonia [None]
  - Pulmonary infarction [None]

NARRATIVE: CASE EVENT DATE: 20180416
